FAERS Safety Report 18715531 (Version 1)
Quarter: 2021Q1

REPORT INFORMATION
  Report Type: Spontaneous
  Country: DE (occurrence: DE)
  Receive Date: 20210108
  Receipt Date: 20210108
  Transmission Date: 20210419
  Serious: Yes (Other)
  Sender: FDA-Public Use
  Company Number: DE-ABBVIE-21K-062-3717641-00

PATIENT
  Age: 77 Year
  Sex: Male

DRUGS (5)
  1. TESTOGEL [Suspect]
     Active Substance: TESTOSTERONE
     Indication: ANDROGEN DEFICIENCY
     Dosage: PER ARM IN ACCORDANCE WITH THE PACKAGE INSERT
     Route: 061
     Dates: start: 202012, end: 20201226
  2. LIXIANA [Interacting]
     Active Substance: EDOXABAN TOSYLATE
     Indication: ARRHYTHMIA
     Route: 065
     Dates: start: 202003
  3. SIMVABETA [Concomitant]
     Active Substance: SIMVASTATIN
     Indication: PRODUCT USED FOR UNKNOWN INDICATION
  4. TESTOGEL [Interacting]
     Active Substance: TESTOSTERONE
     Indication: FATIGUE
  5. ATMADISC [Concomitant]
     Active Substance: FLUTICASONE PROPIONATE\SALMETEROL XINAFOATE
     Indication: PRODUCT USED FOR UNKNOWN INDICATION

REACTIONS (7)
  - Systolic hypertension [Recovered/Resolved]
  - Fatigue [Recovered/Resolved]
  - Drug interaction [Recovered/Resolved]
  - Arrhythmia [Recovered/Resolved]
  - Night sweats [Recovered/Resolved]
  - Arrhythmia [Recovered/Resolved]
  - Heart rate increased [Recovered/Resolved]

NARRATIVE: CASE EVENT DATE: 202012
